FAERS Safety Report 20663507 (Version 1)
Quarter: 2022Q2

REPORT INFORMATION
  Report Type: Spontaneous
  Country: US (occurrence: US)
  Receive Date: 20220401
  Receipt Date: 20220401
  Transmission Date: 20220720
  Serious: No
  Sender: FDA-Public Use
  Company Number: US-drreddys-SPO/USA/22/0148323

PATIENT
  Age: 37 Year
  Sex: Female

DRUGS (2)
  1. ACCUTANE [Suspect]
     Active Substance: ISOTRETINOIN
     Indication: Product used for unknown indication
     Dosage: RMA ISSUE DATE: 11/FEBRUARY/2022 11:13:42 AM, 06/JANUARY/2022 01:58:14 PM, 06/DECEMBER/2021 11:59:30
  2. ABSORICA [Suspect]
     Active Substance: ISOTRETINOIN
     Indication: Product used for unknown indication
     Dosage: RMA ISSUE DATE: 26/OCTOBER/2021 03:46:10 PM

REACTIONS (1)
  - Adverse drug reaction [Unknown]
